FAERS Safety Report 4717192-7 (Version None)
Quarter: 2005Q3

REPORT INFORMATION
  Report Type: 
  Country: None (occurrence: None)
  Receive Date: 20050712
  Receipt Date: 20041129
  Transmission Date: 20060218
  Serious: Yes (Hospitalization)
  Sender: FDA-Public Use
  Company Number: 2004100239

PATIENT
  Age: 55 Year
  Sex: Female

DRUGS (5)
  1. QUINAPRIL HCL [Suspect]
     Indication: ILL-DEFINED DISORDER
  2. PEGFILGRASTIM [Suspect]
     Indication: CHEMOTHERAPY
     Dosage: 5 MG (5 MG, 1 IN 3 WK), SUBCUTANEOUS
     Route: 058
     Dates: start: 20041008, end: 20041008
  3. INDAPAMIDE [Suspect]
     Indication: ILL-DEFINED DISORDER
  4. DOXORUBICIN HCL [Suspect]
     Indication: ILL-DEFINED DISORDER
     Dates: start: 20041007, end: 20041007
  5. CYCLOPHOSPHAMIDE [Suspect]
     Indication: ILL-DEFINED DISORDER
     Dates: start: 20041007, end: 20041007

REACTIONS (3)
  - DIZZINESS [None]
  - HYPOTENSION [None]
  - PALPITATIONS [None]
